FAERS Safety Report 4954601-2 (Version None)
Quarter: 2006Q1

REPORT INFORMATION
  Report Type: 
  Country: None (occurrence: None)
  Receive Date: 20060322
  Receipt Date: 20060302
  Transmission Date: 20060701
  Serious: Yes (Other)
  Sender: FDA-Public Use
  Company Number: AU200603003627

PATIENT
  Age: 69 Year
  Sex: Female

DRUGS (5)
  1. ZYPREXA [Suspect]
     Dosage: 10 MG, DAILY (1/D), ORAL
     Route: 048
     Dates: start: 19960101
  2. LASIX [Concomitant]
  3. RAMIPRIL [Concomitant]
  4. LIPITOR [Concomitant]
  5. ANTIBIOTICS [Concomitant]

REACTIONS (4)
  - BLOOD CREATINE PHOSPHOKINASE INCREASED [None]
  - DIABETES MELLITUS [None]
  - MUSCLE RIGIDITY [None]
  - RENAL FAILURE [None]
